FAERS Safety Report 4625058-6 (Version None)
Quarter: 2005Q2

REPORT INFORMATION
  Report Type: 
  Country: None (occurrence: None)
  Receive Date: 20050325
  Receipt Date: 20041214
  Transmission Date: 20051028
  Serious: No
  Sender: FDA-Public Use
  Company Number: US_0501109845

PATIENT
  Age: 69 Year
  Sex: Female

DRUGS (1)
  1. FORTEO [Suspect]
     Indication: BACK DISORDER
     Dosage: 20 UG
     Dates: start: 20041201

REACTIONS (2)
  - HAEMORRHAGE [None]
  - SKIN LACERATION [None]
